FAERS Safety Report 25213473 (Version 1)
Quarter: 2025Q2

REPORT INFORMATION
  Report Type: Spontaneous
  Country: US (occurrence: None)
  Receive Date: 20250417
  Receipt Date: 20250417
  Transmission Date: 20250717
  Serious: Yes (Hospitalization)
  Sender: FDA-CTU
  Company Number: None

PATIENT
  Age: 79 Year
  Sex: Male

DRUGS (2)
  1. ASPIRIN 81MG [Suspect]
     Active Substance: ASPIRIN
     Indication: Coronary artery disease
     Dates: start: 20250214
  2. CLOPIDOGREL BISULFATE [Suspect]
     Active Substance: CLOPIDOGREL BISULFATE

REACTIONS (4)
  - Upper gastrointestinal haemorrhage [None]
  - Blood loss anaemia [None]
  - Duodenal ulcer [None]
  - Hypotension [None]

NARRATIVE: CASE EVENT DATE: 20250409
